FAERS Safety Report 5694782-9 (Version None)
Quarter: 2008Q2

REPORT INFORMATION
  Report Type: 
  Country: None (occurrence: None)
  Receive Date: 20080404
  Receipt Date: 20080325
  Transmission Date: 20081010
  Serious: Yes (Hospitalization)
  Sender: FDA-Public Use
  Company Number: FR-JNJFOC-20080305550

PATIENT
  Age: 15 Year
  Sex: Male

DRUGS (1)
  1. IXPRIM [Suspect]
     Indication: PAIN
     Route: 048

REACTIONS (3)
  - DELIRIUM [None]
  - LOSS OF CONSCIOUSNESS [None]
  - MEMORY IMPAIRMENT [None]
